FAERS Safety Report 4628525-4 (Version None)
Quarter: 2005Q2

REPORT INFORMATION
  Report Type: 
  Country: None (occurrence: None)
  Receive Date: 20050404
  Receipt Date: 20050321
  Transmission Date: 20051028
  Serious: Yes (Hospitalization, Other)
  Sender: FDA-Public Use
  Company Number: SUSI-2005-00248

PATIENT
  Age: 2 Day
  Sex: 0
  Weight: 0.7711 kg

DRUGS (2)
  1. PENTASA [Suspect]
     Indication: COLITIS ULCERATIVE
     Dosage: 2 G,  INTRA-UTERINE
     Route: 015
     Dates: start: 20040101, end: 20040207
  2. ROWASA [Suspect]
     Indication: COLITIS ULCERATIVE
     Dosage: 2 G, DAILY, INTRA-UTERINE
     Route: 015
     Dates: start: 20041101, end: 20040207

REACTIONS (6)
  - BLOOD CREATININE INCREASED [None]
  - DRUG EXPOSURE DURING PREGNANCY [None]
  - FOETAL GROWTH RETARDATION [None]
  - NEONATAL DISORDER [None]
  - PREMATURE BABY [None]
  - RENAL IMPAIRMENT NEONATAL [None]
